FAERS Safety Report 17822573 (Version 1)
Quarter: 2020Q2

REPORT INFORMATION
  Report Type: Other
  Country: US (occurrence: US)
  Receive Date: 20200526
  Receipt Date: 20200526
  Transmission Date: 20200714
  Serious: Yes (Hospitalization, Other)
  Sender: FDA-Public Use
  Company Number: US-SHANGHAI HENGRUI PHARMACEUTICAL CO., LTD.-2084151

PATIENT
  Age: 32 Year
  Sex: Female

DRUGS (8)
  1. PROPOFOL. [Suspect]
     Active Substance: PROPOFOL
  2. ALBUTEROL. [Concomitant]
     Active Substance: ALBUTEROL
  3. MAGNESIUM CITRATE. [Concomitant]
     Active Substance: MAGNESIUM CITRATE
  4. LIDOCAINE. [Suspect]
     Active Substance: LIDOCAINE
  5. ONDANSETRON [Suspect]
     Active Substance: ONDANSETRON
  6. SUCCINYLCHOLINE [Suspect]
     Active Substance: SUCCINYLCHOLINE
  7. DEXAMETHASONE. [Suspect]
     Active Substance: DEXAMETHASONE
  8. SEVOFLURANE USP, 100%, LIQUID FOR INHALATION [Suspect]
     Active Substance: SEVOFLURANE
     Indication: MAINTENANCE OF ANAESTHESIA

REACTIONS (1)
  - Rhabdomyolysis [Recovering/Resolving]
